FAERS Safety Report 17083187 (Version 8)
Quarter: 2021Q4

REPORT INFORMATION
  Report Type: Report from Study
  Country: US (occurrence: US)
  Receive Date: 20191127
  Receipt Date: 20211012
  Transmission Date: 20220303
  Serious: Yes (Hospitalization)
  Sender: FDA-Public Use
  Company Number: NVSC2019US046624

PATIENT
  Age: 17 Year
  Sex: Male

DRUGS (18)
  1. RUXOLITINIB [Suspect]
     Active Substance: RUXOLITINIB
     Indication: Acute lymphocytic leukaemia
     Dosage: 65 MG, BID
     Route: 048
     Dates: start: 20190506, end: 20191106
  2. RUXOLITINIB [Suspect]
     Active Substance: RUXOLITINIB
     Dosage: 65 MG, BID
     Route: 048
     Dates: start: 20191111
  3. METHOTREXATE [Suspect]
     Active Substance: METHOTREXATE
     Indication: Acute lymphocytic leukaemia
     Dosage: 15 MG IN 8 ML SODIUM CHLORIDE
     Route: 037
     Dates: start: 20190514, end: 20191106
  4. METHOTREXATE [Suspect]
     Active Substance: METHOTREXATE
     Dosage: 15 MG IN 8 ML SODIUM CHLORIDE
     Route: 037
     Dates: start: 20191113
  5. MERCAPTOPURINE [Suspect]
     Active Substance: MERCAPTOPURINE
     Indication: Acute lymphocytic leukaemia
     Dosage: 50 MG
     Route: 048
     Dates: start: 20190506, end: 20191106
  6. MERCAPTOPURINE [Suspect]
     Active Substance: MERCAPTOPURINE
     Dosage: 50 MG
     Route: 048
     Dates: start: 20191113
  7. CYTARABINE [Suspect]
     Active Substance: CYTARABINE
     Indication: Acute lymphocytic leukaemia
     Dosage: 135 MG
     Route: 042
     Dates: start: 20190506, end: 20191106
  8. CYTARABINE [Suspect]
     Active Substance: CYTARABINE
     Dosage: 135 MG
     Route: 042
     Dates: start: 20191122
  9. VINCRISTINE [Suspect]
     Active Substance: VINCRISTINE
     Indication: Acute lymphocytic leukaemia
     Dosage: 2 MG IN SODIUM CHLORIDE 0.9%
     Route: 042
     Dates: start: 20190522, end: 20191106
  10. VINCRISTINE [Suspect]
     Active Substance: VINCRISTINE
     Dosage: 2 MG IN SODIUM CHLORIDE 0.9%
     Route: 042
     Dates: start: 20191113
  11. PEGASPARGASE [Suspect]
     Active Substance: PEGASPARGASE
     Indication: Acute lymphocytic leukaemia
     Dosage: 2500 IU
     Route: 042
     Dates: start: 20190619, end: 20191106
  12. PEGASPARGASE [Suspect]
     Active Substance: PEGASPARGASE
     Dosage: 2500 IU
     Route: 042
     Dates: start: 20191114
  13. VANCOMYCIN [Concomitant]
     Active Substance: VANCOMYCIN
     Indication: Product used for unknown indication
     Dosage: UNK
     Route: 065
     Dates: start: 20191106, end: 201911
  14. VANCOMYCIN [Concomitant]
     Active Substance: VANCOMYCIN
     Dosage: HALF DOSE
     Route: 065
     Dates: start: 201911, end: 20191107
  15. KYTRIL [Concomitant]
     Active Substance: GRANISETRON HYDROCHLORIDE
     Indication: Nausea
     Dosage: UNK
     Route: 065
     Dates: start: 20190525
  16. BENADRYL [Concomitant]
     Active Substance: DIPHENHYDRAMINE HYDROCHLORIDE
     Indication: Pruritus
     Dosage: PRN
     Route: 065
     Dates: start: 20190325
  17. BENADRYL [Concomitant]
     Active Substance: DIPHENHYDRAMINE HYDROCHLORIDE
     Indication: Urticaria
  18. ACETAMINOPHEN [Concomitant]
     Active Substance: ACETAMINOPHEN
     Indication: Pyrexia
     Dosage: PRN
     Route: 065
     Dates: start: 20190330

REACTIONS (1)
  - Adenovirus infection [Recovered/Resolved]

NARRATIVE: CASE EVENT DATE: 20191106
